FAERS Safety Report 11788325 (Version 4)
Quarter: 2016Q1

REPORT INFORMATION
  Report Type: Report from Study
  Country: US (occurrence: US)
  Receive Date: 20151201
  Receipt Date: 20160111
  Transmission Date: 20160525
  Serious: Yes (Hospitalization, Other)
  Sender: FDA-Public Use
  Company Number: US-ALEXION PHARMACEUTICALS INC-A201504657

PATIENT
  Age: 53 Year
  Sex: Male

DRUGS (2)
  1. LOVENOX [Concomitant]
     Active Substance: ENOXAPARIN SODIUM
     Indication: PRODUCT USED FOR UNKNOWN INDICATION
     Route: 065
  2. SOLIRIS [Suspect]
     Active Substance: ECULIZUMAB
     Indication: HAEMOLYTIC URAEMIC SYNDROME
     Dosage: UNK
     Route: 042

REACTIONS (11)
  - Myocardial infarction [Not Recovered/Not Resolved]
  - Staring [Unknown]
  - Sepsis [Unknown]
  - Speech disorder [Recovering/Resolving]
  - Haemorrhagic stroke [Unknown]
  - Movement disorder [Unknown]
  - Hemiplegia [Unknown]
  - Blood pressure increased [Recovering/Resolving]
  - Abasia [Unknown]
  - Sialoadenitis [Unknown]
  - Muscle rigidity [Unknown]

NARRATIVE: CASE EVENT DATE: 20151117
